FAERS Safety Report 16664898 (Version 1)
Quarter: 2019Q3

REPORT INFORMATION
  Report Type: Spontaneous
  Country: US (occurrence: US)
  Receive Date: 20190803
  Receipt Date: 20190803
  Transmission Date: 20191004
  Serious: Yes (Other)
  Sender: FDA-Public Use
  Company Number: US-ACCORD-070552

PATIENT
  Age: 74 Year
  Sex: Female

DRUGS (8)
  1. DOCETAXEL ACCORD [Suspect]
     Active Substance: DOCETAXEL
     Indication: BREAST CANCER
     Dosage: NO OF CYCLES: 06, EVERY 3 WEEKS
     Dates: start: 20130517, end: 20130906
  2. AMLODIPINE [Concomitant]
     Active Substance: AMLODIPINE BESYLATE
     Dates: start: 2006
  3. LOSARTAN. [Concomitant]
     Active Substance: LOSARTAN
     Dates: start: 2006
  4. TRIAMTERENE. [Concomitant]
     Active Substance: TRIAMTERENE
     Dates: start: 2013
  5. PROPRANOLOL [Concomitant]
     Active Substance: PROPRANOLOL HYDROCHLORIDE
     Dates: start: 2006
  6. POTASSIUM [Concomitant]
     Active Substance: POTASSIUM
     Dates: start: 2013
  7. CARBOPLATIN. [Suspect]
     Active Substance: CARBOPLATIN
     Indication: BREAST CANCER
     Dosage: EVERY 3 WEEKS
     Dates: start: 20130517, end: 20130906
  8. SULFASALAZINE. [Concomitant]
     Active Substance: SULFASALAZINE
     Dates: start: 2006

REACTIONS (1)
  - Alopecia [Not Recovered/Not Resolved]

NARRATIVE: CASE EVENT DATE: 20140306
